FAERS Safety Report 21299372 (Version 3)
Quarter: 2022Q4

REPORT INFORMATION
  Report Type: Spontaneous
  Country: JP (occurrence: None)
  Receive Date: 20220906
  Receipt Date: 20221028
  Transmission Date: 20230113
  Serious: Yes (Hospitalization, Other)
  Sender: FDA-Public Use
  Company Number: 2022A305167

PATIENT
  Age: 77 Year
  Sex: Female
  Weight: 48 kg

DRUGS (4)
  1. TAGRISSO [Suspect]
     Active Substance: OSIMERTINIB
     Indication: Non-small cell lung cancer
     Route: 048
     Dates: start: 20220428, end: 20220726
  2. AMLODIPINE [Concomitant]
     Active Substance: AMLODIPINE BESYLATE
     Indication: Hypertension
     Route: 048
     Dates: start: 20220419
  3. FRUCTOSE\GLYCERIN [Concomitant]
     Active Substance: FRUCTOSE\GLYCERIN
     Route: 042
     Dates: start: 20220726, end: 20220802
  4. AMINO ACIDS\DEXTROSE\ELECTROLYTES NOS\VITAMINS [Concomitant]
     Active Substance: AMINO ACIDS\DEXTROSE\ELECTROLYTES NOS\VITAMINS
     Route: 042
     Dates: start: 20220726, end: 20220726

REACTIONS (8)
  - Metastases to central nervous system [Recovering/Resolving]
  - Malignant neoplasm progression [Recovering/Resolving]
  - Rib fracture [Unknown]
  - Herpes zoster [Recovering/Resolving]
  - Hepatitis B [Recovered/Resolved]
  - Hyponatraemia [Recovering/Resolving]
  - Inappropriate antidiuretic hormone secretion [Recovering/Resolving]
  - Skin papilloma [Recovering/Resolving]

NARRATIVE: CASE EVENT DATE: 20220101
